FAERS Safety Report 14539748 (Version 1)
Quarter: 2018Q1

REPORT INFORMATION
  Report Type: Spontaneous
  Country: US (occurrence: US)
  Receive Date: 20180215
  Receipt Date: 20180215
  Transmission Date: 20180509
  Serious: Yes (Other)
  Sender: FDA-Public Use
  Company Number: None

PATIENT
  Sex: Male
  Weight: 100.8 kg

DRUGS (1)
  1. ZUBSOLV [Suspect]
     Active Substance: BUPRENORPHINE HYDROCHLORIDE\NALOXONE HYDROCHLORIDE
     Indication: DEPENDENCE
     Dosage: ?          QUANTITY:35 TABLET(S);?
     Route: 060
     Dates: start: 20180208, end: 20180215

REACTIONS (4)
  - Mouth ulceration [None]
  - Rash [None]
  - Hyperaesthesia [None]
  - Headache [None]

NARRATIVE: CASE EVENT DATE: 20180210
